FAERS Safety Report 9516525 (Version 1)
Quarter: 2013Q3

REPORT INFORMATION
  Report Type: Spontaneous
  Country: US (occurrence: US)
  Receive Date: 20130911
  Receipt Date: 20130911
  Transmission Date: 20140515
  Serious: No
  Sender: FDA-Public Use
  Company Number: US-009507513-1309USA004298

PATIENT
  Sex: Female

DRUGS (5)
  1. PROVENTIL [Suspect]
     Indication: CHRONIC OBSTRUCTIVE PULMONARY DISEASE
     Dosage: ONE PUFF BY MOUTH EVERY FOURS HOURS AS NEEDED
     Route: 055
     Dates: start: 2003
  2. PROVENTIL [Suspect]
     Indication: EMPHYSEMA
  3. PROVENTIL [Suspect]
     Indication: BRONCHITIS
  4. SPIRIVA [Concomitant]
     Dosage: UNKNOWN
  5. ANTIMICROBIAL (UNSPECIFIED) [Concomitant]
     Dosage: UNKNOWN

REACTIONS (3)
  - Cough [Not Recovered/Not Resolved]
  - Drug dose omission [Unknown]
  - Product quality issue [Unknown]
